FAERS Safety Report 6766810-0 (Version None)
Quarter: 2010Q2

REPORT INFORMATION
  Report Type: 
  Country: None (occurrence: None)
  Receive Date: 20100611
  Receipt Date: 20100601
  Transmission Date: 20101027
  Serious: Yes (Other)
  Sender: FDA-Public Use
  Company Number: US-ELI_LILLY_AND_COMPANY-US201006000636

PATIENT
  Age: 77 Year
  Sex: Female

DRUGS (8)
  1. CYMBALTA [Suspect]
     Indication: FIBROMYALGIA
     Dosage: 30 MG, UNKNOWN
     Route: 065
  2. LYRICA [Concomitant]
  3. TRAZODONE [Concomitant]
  4. HYDRALAZINE HCL [Concomitant]
  5. ISOSORBIDE [Concomitant]
  6. VICODIN [Concomitant]
  7. OMEPRAZOLE [Concomitant]
  8. ALLOPURINOL [Concomitant]

REACTIONS (2)
  - DIALYSIS [None]
  - MUSCLE SPASMS [None]
